FAERS Safety Report 20584583 (Version 1)
Quarter: 2022Q1

REPORT INFORMATION
  Report Type: Spontaneous
  Country: FR (occurrence: FR)
  Receive Date: 20220311
  Receipt Date: 20220311
  Transmission Date: 20220423
  Serious: Yes (Hospitalization)
  Sender: FDA-Public Use
  Company Number: None

PATIENT
  Age: 69 Year
  Sex: Female
  Weight: 81.8 kg

DRUGS (11)
  1. VENLAFAXINE [Suspect]
     Active Substance: VENLAFAXINE HYDROCHLORIDE
     Indication: Anxiety
     Dosage: 75 MG (1 COMPRIME DE 75 MG LE SOIR)
     Route: 048
     Dates: end: 202201
  2. VENLAFAXINE [Suspect]
     Active Substance: VENLAFAXINE HYDROCHLORIDE
     Dosage: 112.5 MG (1 COMPRIME DE 37.5MG LE MATIN ET 1 COMPRIME DE 75 MG LE SOIR)
     Route: 048
     Dates: start: 202201
  3. TAFINLAR [Suspect]
     Active Substance: DABRAFENIB MESYLATE
     Indication: Metastatic malignant melanoma
     Dosage: 4 DOSAGE FORM (2 GELULES LE MATIN ET 2 GELULES LE SOIR)
     Route: 048
     Dates: start: 20220218, end: 20220223
  4. MEKINIST [Suspect]
     Active Substance: TRAMETINIB DIMETHYL SULFOXIDE
     Indication: Metastatic malignant melanoma
     Dosage: 1 DOSAGE FORM (1 COMPRIME LE MATIN)
     Route: 048
     Dates: start: 20220218, end: 20220223
  5. CLOZAPINE [Interacting]
     Active Substance: CLOZAPINE
     Indication: Dementia with Lewy bodies
     Dosage: 37.5 MG (1.5 COMPRIME DE 25MG LE SOIR)
     Route: 048
     Dates: end: 20220223
  6. CLOZAPINE [Interacting]
     Active Substance: CLOZAPINE
     Dosage: 12.5 MG
     Route: 048
     Dates: start: 20220223
  7. ESOMEPRAZOLE [Concomitant]
     Active Substance: ESOMEPRAZOLE
     Indication: Gastrooesophageal reflux disease
     Dosage: 20 MG
     Route: 065
  8. PERINDOPRIL [Concomitant]
     Active Substance: PERINDOPRIL
     Indication: Hypertension
     Dosage: 2 MG
     Route: 065
  9. LEVOTHYROXINE SODIUM [Concomitant]
     Active Substance: LEVOTHYROXINE SODIUM
     Indication: Hypothyroidism
     Dosage: 100 UG
     Route: 048
  10. BENSERAZIDE HYDROCHLORIDE\LEVODOPA [Concomitant]
     Active Substance: BENSERAZIDE HYDROCHLORIDE\LEVODOPA
     Indication: Dementia with Lewy bodies
     Dosage: 4 DOSAGE FORM (1 A 8H,12H,16H ET 20H,
     Route: 065
  11. BENSERAZIDE HYDROCHLORIDE\LEVODOPA [Concomitant]
     Active Substance: BENSERAZIDE HYDROCHLORIDE\LEVODOPA
     Dosage: 4 DOSAGE FORM (1 A 8H,12H,16H ET 20H, 62,5 (50 MG/12,5 MG), G?LULE
     Route: 065

REACTIONS (1)
  - Confusional state [Recovering/Resolving]

NARRATIVE: CASE EVENT DATE: 20220220
